FAERS Safety Report 20900752 (Version 3)
Quarter: 2022Q3

REPORT INFORMATION
  Report Type: Spontaneous
  Country: FR (occurrence: FR)
  Receive Date: 20220601
  Receipt Date: 20220711
  Transmission Date: 20221027
  Serious: Yes (Hospitalization)
  Sender: FDA-Public Use
  Company Number: None

PATIENT
  Age: 32 Year
  Sex: Male

DRUGS (9)
  1. DIAZEPAM [Suspect]
     Active Substance: DIAZEPAM
     Indication: Product used for unknown indication
  2. TRANXENE [Suspect]
     Active Substance: CLORAZEPATE DIPOTASSIUM
     Indication: Product used for unknown indication
  3. METHADONE HYDROCHLORIDE [Suspect]
     Active Substance: METHADONE HYDROCHLORIDE
     Indication: Product used for unknown indication
  4. CANNABIS SATIVA SUBSP. INDICA TOP [Suspect]
     Active Substance: CANNABIS SATIVA SUBSP. INDICA TOP
     Indication: Drug abuse
  5. SULPIRIDE [Suspect]
     Active Substance: SULPIRIDE
     Indication: Product used for unknown indication
  6. MIRTAZAPINE [Suspect]
     Active Substance: MIRTAZAPINE
     Indication: Product used for unknown indication
  7. COCAINE [Suspect]
     Active Substance: COCAINE
     Indication: Product used for unknown indication
  8. MAPROTILINE HYDROCHLORIDE [Suspect]
     Active Substance: MAPROTILINE HYDROCHLORIDE
     Indication: Product used for unknown indication
  9. BROMAZEPAM [Suspect]
     Active Substance: BROMAZEPAM
     Indication: Product used for unknown indication

REACTIONS (8)
  - Renal failure [Unknown]
  - Confusional state [Unknown]
  - Poisoning [Unknown]
  - Extrapyramidal disorder [Unknown]
  - Pneumonia aspiration [Unknown]
  - Rhabdomyolysis [Unknown]
  - Nervous system disorder [Unknown]
  - Toxicity to various agents [Recovered/Resolved]
